FAERS Safety Report 12317225 (Version 1)
Quarter: 2016Q2

REPORT INFORMATION
  Report Type: Spontaneous
  Country: CN (occurrence: CN)
  Receive Date: 20160429
  Receipt Date: 20160429
  Transmission Date: 20160815
  Serious: Yes (Other)
  Sender: FDA-Public Use
  Company Number: CN-BAYER-2016-076716

PATIENT
  Age: 82 Year
  Sex: Male
  Weight: 40 kg

DRUGS (1)
  1. AVELOX [Suspect]
     Active Substance: MOXIFLOXACIN HYDROCHLORIDE
     Indication: INFECTION
     Dosage: 0.4 G, QD
     Route: 041
     Dates: start: 20151023, end: 20151025

REACTIONS (5)
  - Altered state of consciousness [Recovered/Resolved]
  - Cognitive disorder [Recovered/Resolved]
  - Incoherent [Recovered/Resolved]
  - Abnormal behaviour [Recovered/Resolved]
  - Psychotic disorder [Recovered/Resolved]

NARRATIVE: CASE EVENT DATE: 20151024
